FAERS Safety Report 23807129 (Version 1)
Quarter: 2024Q2

REPORT INFORMATION
  Report Type: Other
  Country: CN (occurrence: CN)
  Receive Date: 20240502
  Receipt Date: 20240502
  Transmission Date: 20240716
  Serious: Yes (Other)
  Sender: FDA-Public Use
  Company Number: CN-ASTELLAS-2024US012357

PATIENT
  Age: 25 Year
  Sex: Female
  Weight: 58 kg

DRUGS (2)
  1. PROGRAF [Suspect]
     Active Substance: TACROLIMUS
     Indication: Lupus nephritis
     Dosage: 1 MG, OTHER (1 MG EVERY 2 HOURS (Q2H))
     Route: 048
     Dates: start: 2021
  2. PROGRAF [Suspect]
     Active Substance: TACROLIMUS
     Dosage: 2 MG, EVERY 12 HOURS (2 MG Q12H)
     Route: 048
     Dates: start: 20240417, end: 20240422

REACTIONS (5)
  - Disease recurrence [Unknown]
  - Mouth ulceration [Unknown]
  - Mouth ulceration [Not Recovered/Not Resolved]
  - Therapeutic product effect incomplete [Unknown]
  - Off label use [Unknown]

NARRATIVE: CASE EVENT DATE: 20210101
